FAERS Safety Report 6756952-8 (Version None)
Quarter: 2010Q2

REPORT INFORMATION
  Report Type: 
  Country: None (occurrence: None)
  Receive Date: 20100603
  Receipt Date: 20100603
  Transmission Date: 20101027
  Serious: Yes (Hospitalization)
  Sender: FDA-Public Use
  Company Number: None

PATIENT
  Age: 72 Year
  Sex: Male
  Weight: 80.05 kg

DRUGS (2)
  1. MORPHINE [Suspect]
     Dosage: 15 MG BID PO
     Route: 048
     Dates: start: 20091001, end: 20100122
  2. SUNITINIB MALATE [Suspect]
     Dosage: 50 MG EVERY DAY PO
     Route: 048
     Dates: start: 20091125, end: 20100211

REACTIONS (14)
  - ABDOMINAL PAIN [None]
  - ASTHENIA [None]
  - CONSTIPATION [None]
  - COUGH [None]
  - DYSPNOEA [None]
  - GASTROINTESTINAL DISORDER [None]
  - HAEMATEMESIS [None]
  - HEPATIC ENZYME ABNORMAL [None]
  - NAUSEA [None]
  - NEUTROPENIA [None]
  - THROMBOCYTOPENIA [None]
  - VOMITING [None]
  - WEIGHT DECREASED [None]
  - WHEEZING [None]
